FAERS Safety Report 23614696 (Version 2)
Quarter: 2025Q3

REPORT INFORMATION
  Report Type: Spontaneous
  Country: EU (occurrence: EU)
  Receive Date: 20240311
  Receipt Date: 20250711
  Transmission Date: 20251021
  Serious: Yes (Other)
  Sender: NOVO NORDISK
  Company Number: None

PATIENT
  Age: 69 Year
  Sex: Female
  Weight: 90 kg

DRUGS (9)
  1. ESTRIOL [Concomitant]
     Active Substance: ESTRIOL
     Indication: Hormone therapy
     Route: 067
     Dates: start: 20201217
  2. ESTRING [Concomitant]
     Active Substance: ESTRADIOL
     Indication: Hormone therapy
     Route: 067
     Dates: start: 20200302
  3. MOMETASONE [Concomitant]
     Active Substance: MOMETASONE
     Indication: Nasal congestion
     Route: 045
     Dates: start: 20191029
  4. DERMOVAT [BETAMETHASONE VALERATE] [Concomitant]
     Indication: Skin disorder
     Route: 003
     Dates: start: 20200813
  5. DYMISTA [Concomitant]
     Active Substance: AZELASTINE HYDROCHLORIDE\FLUTICASONE PROPIONATE
     Indication: Seasonal allergy
     Route: 045
     Dates: start: 20230118
  6. ACICLODAN [Concomitant]
     Indication: Herpes virus infection
     Dosage: 800 MG
     Route: 048
     Dates: start: 20230501
  7. WEGOVY [Suspect]
     Active Substance: SEMAGLUTIDE
     Indication: Overweight
     Route: 058
     Dates: start: 20230411
  8. WEGOVY [Suspect]
     Active Substance: SEMAGLUTIDE
     Dosage: 1.7 MG, QW
     Route: 058
     Dates: start: 20230918, end: 20240112
  9. ACETAMINOPHEN [Concomitant]
     Active Substance: ACETAMINOPHEN
     Indication: Pain
     Dosage: 1330 MG, QD
     Route: 048
     Dates: start: 20190919

REACTIONS (4)
  - Drug-induced liver injury [Recovered/Resolved]
  - Malaise [Unknown]
  - Fatigue [Unknown]
  - Nausea [Unknown]

NARRATIVE: CASE EVENT DATE: 20240101
